FAERS Safety Report 5087315-1 (Version None)
Quarter: 2006Q3

REPORT INFORMATION
  Report Type: 
  Country: None (occurrence: None)
  Receive Date: 20060823
  Receipt Date: 20060823
  Transmission Date: 20061208
  Serious: Yes (Hospitalization)
  Sender: FDA-Public Use
  Company Number: None

PATIENT
  Age: 74 Year
  Sex: Male

DRUGS (6)
  1. RITUXIMAB [Suspect]
     Indication: MANTLE CELL LYMPHOMA
  2. THALIDOMIDE [Suspect]
  3. PREDNISONE TAB [Suspect]
  4. ETOPOSIDE [Suspect]
  5. PROCARBAZINE [Suspect]
  6. CYTOXAN [Suspect]

REACTIONS (2)
  - FEBRILE NEUTROPENIA [None]
  - WHITE BLOOD CELL COUNT DECREASED [None]
